FAERS Safety Report 9913245 (Version 1)
Quarter: 2014Q1

REPORT INFORMATION
  Report Type: Spontaneous
  Country: US (occurrence: None)
  Receive Date: 20140218
  Receipt Date: 20140218
  Transmission Date: 20141002
  Serious: Yes (Other)
  Sender: FDA-Public Use
  Company Number: None

PATIENT
  Age: 69 Year
  Sex: Female
  Weight: 55.34 kg

DRUGS (3)
  1. DOXORUBICIN LIPOSOMAL [Suspect]
     Indication: OVARIAN CANCER
     Dosage: EVERY 28 DAYS
     Route: 042
     Dates: start: 20140213, end: 20140213
  2. DEXAMETHASONE [Concomitant]
  3. ANTIEMETICS [Concomitant]

REACTIONS (6)
  - Flushing [None]
  - Chest pain [None]
  - Back pain [None]
  - Dyspnoea [None]
  - Infusion related reaction [None]
  - Product substitution issue [None]
